FAERS Safety Report 7591207-3 (Version None)
Quarter: 2011Q3

REPORT INFORMATION
  Report Type: 
  Country: None (occurrence: None)
  Receive Date: 20110706
  Receipt Date: 20110624
  Transmission Date: 20111222
  Serious: Yes (Hospitalization, Other)
  Sender: FDA-Public Use
  Company Number: DE-BIOGENIDEC-2011BI010490

PATIENT
  Age: 32 Year
  Sex: Male
  Weight: 75 kg

DRUGS (3)
  1. SUPRADYN [Concomitant]
  2. CORTISONE ACETATE [Concomitant]
     Dates: start: 20110301, end: 20110301
  3. TYSABRI [Suspect]
     Indication: RELAPSING-REMITTING MULTIPLE SCLEROSIS
     Route: 042
     Dates: start: 20091019

REACTIONS (2)
  - MULTIPLE SCLEROSIS [None]
  - SECONDARY PROGRESSIVE MULTIPLE SCLEROSIS [None]
